FAERS Safety Report 4655418-9 (Version None)
Quarter: 2005Q2

REPORT INFORMATION
  Report Type: 
  Country: None (occurrence: None)
  Receive Date: 20050505
  Receipt Date: 20050414
  Transmission Date: 20051028
  Serious: Yes (Other)
  Sender: FDA-Public Use
  Company Number: USA050495693

PATIENT
  Age: 15 Year
  Sex: Male
  Weight: 98 kg

DRUGS (4)
  1. STRATTERA [Suspect]
     Indication: ATTENTION DEFICIT/HYPERACTIVITY DISORDER
     Dosage: 120 MG DAY
     Dates: start: 20050203
  2. RIMANTADINE HCL [Concomitant]
  3. ZYRTEC (CETIRIZINE HYDROCHLORIDE)(MONTELUKAST) [Concomitant]
  4. SINGULAIR (MONTELUKAST) [Concomitant]

REACTIONS (2)
  - DRUG DISPENSING ERROR [None]
  - LOSS OF CONSCIOUSNESS [None]
